FAERS Safety Report 25638364 (Version 1)
Quarter: 2025Q3

REPORT INFORMATION
  Report Type: Spontaneous
  Country: US (occurrence: US)
  Receive Date: 20250804
  Receipt Date: 20250804
  Transmission Date: 20251021
  Serious: No
  Sender: CHIESI
  Company Number: US-CHIESI-2025CHF04427

PATIENT

DRUGS (1)
  1. KENGREAL [Suspect]
     Active Substance: CANGRELOR
     Indication: Product used for unknown indication
     Route: 065

REACTIONS (2)
  - Off label use [Recovered/Resolved]
  - Off label use [Recovered/Resolved]
